FAERS Safety Report 6182356-5 (Version None)
Quarter: 2009Q2

REPORT INFORMATION
  Report Type: 
  Country: None (occurrence: None)
  Receive Date: 20090504
  Receipt Date: 20090504
  Transmission Date: 20091009
  Serious: Yes (Other)
  Sender: FDA-Public Use
  Company Number: None

PATIENT
  Age: 53 Year
  Sex: Female
  Weight: 58.9676 kg

DRUGS (2)
  1. LAMOTRIGINE [Suspect]
     Indication: AFFECTIVE DISORDER
     Dosage: 150 MG 1 PO
     Route: 048
     Dates: start: 20090422, end: 20090502
  2. LAMOTRIGINE [Suspect]
     Indication: BORDERLINE PERSONALITY DISORDER
     Dosage: 150 MG 1 PO
     Route: 048
     Dates: start: 20090422, end: 20090502

REACTIONS (3)
  - FEMALE SEXUAL AROUSAL DISORDER [None]
  - HYPOMANIA [None]
  - SIMILAR REACTION ON PREVIOUS EXPOSURE TO DRUG [None]
